FAERS Safety Report 7265016-9 (Version None)
Quarter: 2011Q1

REPORT INFORMATION
  Report Type: 
  Country: None (occurrence: None)
  Receive Date: 20110131
  Receipt Date: 20101116
  Transmission Date: 20110831
  Serious: Yes (Hospitalization)
  Sender: FDA-Public Use
  Company Number: US-BAYER-201038320NA

PATIENT
  Sex: Female
  Weight: 72.562 kg

DRUGS (8)
  1. HYDROCODONE [Concomitant]
     Dosage: 500 MG, UNK
     Route: 048
     Dates: start: 20030902
  2. YAZ [Suspect]
     Indication: ACNE
  3. AMOXICILLIN [Concomitant]
  4. CIPROFLOXACIN [Concomitant]
     Dosage: 500 MG, UNK
     Route: 048
     Dates: start: 20030503
  5. INDOMETACIN [Concomitant]
     Dosage: 75 MG, UNK
     Route: 048
     Dates: start: 20030902
  6. YASMIN [Suspect]
     Indication: ACNE
     Dosage: DAILY DOSE 1 DF
     Dates: start: 20030820, end: 20031101
  7. OCELLA [Suspect]
     Indication: ACNE
  8. YASMIN [Suspect]
     Indication: CONTRACEPTION

REACTIONS (5)
  - PULMONARY EMBOLISM [None]
  - ABDOMINAL PAIN [None]
  - SYNCOPE [None]
  - TACHYCARDIA [None]
  - DYSPNOEA [None]
